FAERS Safety Report 4313104-9 (Version None)
Quarter: 2004Q1

REPORT INFORMATION
  Report Type: 
  Country: None (occurrence: None)
  Receive Date: 20040304
  Receipt Date: 20040213
  Transmission Date: 20041129
  Serious: Yes (Life-Threatening)
  Sender: FDA-Public Use
  Company Number: JP_040202648

PATIENT
  Age: 32 Year
  Sex: Female

DRUGS (4)
  1. ZYPREXA [Suspect]
     Indication: SCHIZOPHRENIA
     Dosage: 10 MG/DAY
     Dates: start: 20031010, end: 20031229
  2. TEGRETOL [Concomitant]
  3. DEPAS (ETIZOLAM) [Concomitant]
  4. NITRAZEPAM [Concomitant]

REACTIONS (4)
  - HEPATIC ENCEPHALOPATHY [None]
  - HEPATITIS FULMINANT [None]
  - INFECTION [None]
  - PROTHROMBIN TIME SHORTENED [None]
